FAERS Safety Report 11761136 (Version 1)
Quarter: 2015Q4

REPORT INFORMATION
  Report Type: Spontaneous
  Country: US (occurrence: US)
  Receive Date: 20151120
  Receipt Date: 20151120
  Transmission Date: 20160304
  Serious: No
  Sender: FDA-Public Use
  Company Number: US-MEDA-2015110034

PATIENT
  Sex: Female

DRUGS (1)
  1. ELESTRIN [Suspect]
     Active Substance: ESTRADIOL
     Indication: BLOOD OESTROGEN DECREASED
     Route: 061

REACTIONS (1)
  - Drug ineffective [Not Recovered/Not Resolved]
